FAERS Safety Report 13549242 (Version 1)
Quarter: 2017Q2

REPORT INFORMATION
  Report Type: Report from Study
  Country: ES (occurrence: ES)
  Receive Date: 20170516
  Receipt Date: 20170516
  Transmission Date: 20170830
  Serious: Yes (Other)
  Sender: FDA-Public Use
  Company Number: ES-ROCHE-1930908

PATIENT

DRUGS (1)
  1. TOCILIZUMAB [Suspect]
     Active Substance: TOCILIZUMAB
     Indication: RHEUMATOID ARTHRITIS
     Route: 065

REACTIONS (12)
  - Osteomyelitis [Unknown]
  - Neutropenia [Unknown]
  - Urinary tract infection [Unknown]
  - Transfusion reaction [Unknown]
  - Treatment failure [Unknown]
  - Infection [Unknown]
  - Hypersensitivity [Unknown]
  - Headache [Unknown]
  - Bronchospasm [Unknown]
  - Local reaction [Unknown]
  - Hypersensitivity vasculitis [Unknown]
  - Cytopenia [Unknown]
